FAERS Safety Report 5419112-9 (Version None)
Quarter: 2007Q3

REPORT INFORMATION
  Report Type: 
  Country: None (occurrence: None)
  Receive Date: 20070816
  Receipt Date: 20070816
  Transmission Date: 20080115
  Serious: Yes (Other)
  Sender: FDA-Public Use
  Company Number: None

PATIENT
  Age: 47 Year
  Sex: Female

DRUGS (1)
  1. TUBERCULIN (PPD) [Suspect]
     Dosage: RT FOREARM
     Route: 030
     Dates: start: 20070806

REACTIONS (1)
  - INJECTION SITE VESICLES [None]
